FAERS Safety Report 10476877 (Version 5)
Quarter: 2015Q1

REPORT INFORMATION
  Report Type: Report from Study
  Country: CA (occurrence: CA)
  Receive Date: 20140926
  Receipt Date: 20150324
  Transmission Date: 20150720
  Serious: Yes (Other)
  Sender: FDA-Public Use
  Company Number: CA-ROCHE-1458973

PATIENT
  Age: 37 Year
  Sex: Female
  Weight: 68.2 kg

DRUGS (11)
  1. PANTOLOC [Concomitant]
     Active Substance: PANTOPRAZOLE SODIUM
  2. RISEDRONATE [Concomitant]
     Active Substance: RISEDRONATE SODIUM
     Route: 065
     Dates: start: 2015
  3. FOLIC ACID. [Concomitant]
     Active Substance: FOLIC ACID
  4. DICLOFENAC [Concomitant]
     Active Substance: DICLOFENAC
     Route: 065
     Dates: start: 2015
  5. SYNTHROID [Concomitant]
     Active Substance: LEVOTHYROXINE SODIUM
  6. PREDNISONE. [Concomitant]
     Active Substance: PREDNISONE
     Dosage: TITRATING BY 5 MG
     Route: 065
  7. RITUXAN [Suspect]
     Active Substance: RITUXIMAB
     Indication: RHEUMATOID ARTHRITIS
     Dosage: DAY 1 AND 15, LAST DOSE ON 19/SEP/2014 AND 20/MAR/2015
     Route: 042
     Dates: start: 20140904
  8. SULFASALAZINE. [Concomitant]
     Active Substance: SULFASALAZINE
  9. METHOTREXATE [Concomitant]
     Active Substance: METHOTREXATE
  10. EURO D [Concomitant]
     Route: 065
     Dates: start: 2015
  11. PREDNISONE. [Concomitant]
     Active Substance: PREDNISONE
     Route: 065

REACTIONS (8)
  - Hypotension [Unknown]
  - Vision blurred [Unknown]
  - Ear pruritus [Recovered/Resolved]
  - Hypothyroidism [Unknown]
  - Paraesthesia oral [Recovered/Resolved]
  - Hepatic pain [Recovering/Resolving]
  - Dizziness [Unknown]
  - Infusion related reaction [Recovered/Resolved]

NARRATIVE: CASE EVENT DATE: 20140904
